FAERS Safety Report 9889271 (Version 3)
Quarter: 2014Q1

REPORT INFORMATION
  Report Type: Report from Study
  Country: US (occurrence: US)
  Receive Date: 20140211
  Receipt Date: 20140313
  Transmission Date: 20141002
  Serious: Yes (Hospitalization, Other)
  Sender: FDA-Public Use
  Company Number: US-ACTELION-A-US2014-94664

PATIENT
  Age: 77 Year
  Sex: Female

DRUGS (2)
  1. VENTAVIS [Suspect]
     Indication: PULMONARY ARTERIAL HYPERTENSION
     Dosage: 5 MCG, 6X DAY
     Route: 055
     Dates: start: 2009
  2. ADCIRCA [Concomitant]

REACTIONS (4)
  - Rib fracture [Recovered/Resolved]
  - Fall [Recovered/Resolved]
  - Pneumonia [Unknown]
  - Drug dose omission [Recovered/Resolved]
